FAERS Safety Report 5608879-2 (Version None)
Quarter: 2008Q1

REPORT INFORMATION
  Report Type: 
  Country: None (occurrence: None)
  Receive Date: 20080131
  Receipt Date: 20080128
  Transmission Date: 20080703
  Serious: Yes (Other)
  Sender: FDA-Public Use
  Company Number: SE-WYE-G00966408

PATIENT
  Sex: Male

DRUGS (1)
  1. EFFEXOR [Suspect]

REACTIONS (2)
  - LIMB DISCOMFORT [None]
  - PERIPHERAL EMBOLISM [None]
